FAERS Safety Report 24011222 (Version 2)
Quarter: 2024Q3

REPORT INFORMATION
  Report Type: Other
  Country: GB (occurrence: GB)
  Receive Date: 20240625
  Receipt Date: 20240711
  Transmission Date: 20241016
  Serious: Yes (Life-Threatening, Hospitalization, Other)
  Sender: GE HEALTHCARE
  Company Number: None

PATIENT
  Age: 64 Year
  Sex: Male

DRUGS (1)
  1. OMNIPAQUE [Suspect]
     Active Substance: IOHEXOL
     Indication: Angiogram cerebral
     Dosage: UNK, TOTAL
     Route: 065
     Dates: start: 20240319, end: 20240319

REACTIONS (11)
  - Disorientation [Unknown]
  - Anaphylactic reaction [Recovering/Resolving]
  - Blood pressure immeasurable [Unknown]
  - Radial pulse abnormal [Unknown]
  - Lip swelling [Unknown]
  - Ear swelling [Unknown]
  - Swelling face [Unknown]
  - Blood pressure decreased [Unknown]
  - Malaise [Unknown]
  - Hypoaesthesia [Unknown]
  - Rash [Unknown]

NARRATIVE: CASE EVENT DATE: 20240319
